FAERS Safety Report 6424673-7 (Version None)
Quarter: 2009Q4

REPORT INFORMATION
  Report Type: 
  Country: None (occurrence: None)
  Receive Date: 20091102
  Receipt Date: 20091102
  Transmission Date: 20100525
  Serious: Yes (Hospitalization)
  Sender: FDA-Public Use
  Company Number: None

PATIENT
  Age: 84 Year

DRUGS (1)
  1. OXYBUTYNIN [Suspect]
     Indication: INCONTINENCE
     Dosage: 5MG BID PO
     Route: 048
     Dates: start: 20071219, end: 20090420

REACTIONS (3)
  - ABDOMINAL DISTENSION [None]
  - ABDOMINAL PAIN LOWER [None]
  - RENAL FAILURE ACUTE [None]
